FAERS Safety Report 13186071 (Version 1)
Quarter: 2017Q1

REPORT INFORMATION
  Report Type: Report from Study
  Country: AT (occurrence: AT)
  Receive Date: 20170204
  Receipt Date: 20170204
  Transmission Date: 20170428
  Serious: Yes (Hospitalization)
  Sender: FDA-Public Use
  Company Number: AT-BAXTER-2017BAX003912

PATIENT
  Age: 75 Year
  Sex: Male

DRUGS (30)
  1. ENDOXAN ^BAXTER^ 1G - TROCKENSTECHAMPULLE [Suspect]
     Active Substance: CYCLOPHOSPHAMIDE
     Dosage: MOST RECENT DOSE PRIOR TO ADVERSE EVENT
     Route: 042
     Dates: start: 20161216
  2. VENETOCLAX [Suspect]
     Active Substance: VENETOCLAX
     Indication: B-CELL LYMPHOMA
     Dosage: ROUTE AS PER PROTOCOL
     Route: 048
     Dates: start: 20161017
  3. VINCRISTINE [Suspect]
     Active Substance: VINCRISTINE
     Dosage: MOST RECENT DOSE PRIOR TO ADVERSE EVENT
     Route: 040
     Dates: start: 20161216
  4. VALSARTAN. [Concomitant]
     Active Substance: VALSARTAN
     Indication: HYPERTENSION
     Route: 065
  5. DIBONDRIN [Concomitant]
     Active Substance: DIPHENHYDRAMINE HYDROCHLORIDE
     Route: 065
     Dates: start: 20161216, end: 20161216
  6. DOXORUBICIN [Suspect]
     Active Substance: DOXORUBICIN
     Dosage: MOST RECENT DOSE PRIOR TO ADVERSE EVENT
     Route: 042
     Dates: start: 20161216
  7. LOVASTATIN. [Concomitant]
     Active Substance: LOVASTATIN
     Indication: HYPERCHOLESTEROLAEMIA
     Route: 065
  8. MEXALEN [Concomitant]
     Active Substance: ACETAMINOPHEN
     Route: 065
     Dates: start: 20161216, end: 20161216
  9. ZOFRAN [Concomitant]
     Active Substance: ONDANSETRON HYDROCHLORIDE
     Dosage: 1 AMPOULE
     Route: 042
     Dates: start: 20161216, end: 20161216
  10. ENDOXAN ^BAXTER^ 1G - TROCKENSTECHAMPULLE [Suspect]
     Active Substance: CYCLOPHOSPHAMIDE
     Indication: B-CELL LYMPHOMA
     Dosage: STARTING DOSE AND ROUTE AS PER PROTOCOL
     Route: 042
     Dates: start: 20161014
  11. VENETOCLAX [Suspect]
     Active Substance: VENETOCLAX
     Dosage: (CYCLE 4 DAY 10), MOST RECENT DOSE PRIOR TO ADVERSE EVENT
     Route: 048
     Dates: start: 20161223
  12. PREDNISONE. [Suspect]
     Active Substance: PREDNISONE
     Dosage: MOST RECENT DOSE PRIOR TO ADVERSE EVENT
     Route: 048
     Dates: start: 20161220
  13. ZOFRAN [Concomitant]
     Active Substance: ONDANSETRON HYDROCHLORIDE
     Indication: CHEMOTHERAPY
     Dosage: 1 AMPOULE
     Route: 042
     Dates: start: 20161125, end: 20161125
  14. PREDNISONE. [Suspect]
     Active Substance: PREDNISONE
     Indication: B-CELL LYMPHOMA
     Dosage: STARTING DOSE AND ROUTE AS PER PROTOCOL
     Route: 048
     Dates: start: 20161014
  15. FINASTERID [Concomitant]
     Active Substance: FINASTERIDE
     Indication: BENIGN PROSTATIC HYPERPLASIA
     Route: 065
  16. MEXALEN [Concomitant]
     Active Substance: ACETAMINOPHEN
     Indication: CHEMOTHERAPY
     Route: 065
     Dates: start: 20161125, end: 20161125
  17. ALLOSTAD [Concomitant]
     Indication: HYPERURICAEMIA
     Route: 065
  18. NEULASTA [Concomitant]
     Active Substance: PEGFILGRASTIM
     Indication: PROPHYLAXIS
     Route: 065
     Dates: start: 20161126, end: 20161126
  19. RITUXIMAB [Suspect]
     Active Substance: RITUXIMAB
     Indication: B-CELL LYMPHOMA
     Dosage: STARTING DOSE AND ROUTE AS PER PROTOCOL
     Route: 042
     Dates: start: 20161014
  20. RITUXIMAB [Suspect]
     Active Substance: RITUXIMAB
     Dosage: MOST RECENT DOSE PRIOR TO ADVERSE EVENT
     Route: 042
     Dates: start: 20161216
  21. TAMSULOSIN [Concomitant]
     Active Substance: TAMSULOSIN
     Indication: BENIGN PROSTATIC HYPERPLASIA
     Route: 065
  22. TAVANIC [Concomitant]
     Active Substance: LEVOFLOXACIN
     Indication: INFECTION PROPHYLAXIS
     Route: 065
     Dates: start: 20161017
  23. UROMITEXAN 400MG -  AMPULLEN [Suspect]
     Active Substance: MESNA
     Indication: CHEMOTHERAPY
     Route: 065
     Dates: start: 20161125, end: 20161125
  24. DOXORUBICIN [Suspect]
     Active Substance: DOXORUBICIN
     Indication: B-CELL LYMPHOMA
     Dosage: STARTING DOSE AND ROUTE AS PER PROTOCOL
     Route: 042
     Dates: start: 20161014
  25. CALCIUM GLYCEROPHOSPHATE\CELLULOSE\POLYETHYLENE GLYCOL\SACCHARIN SODIUM\SODIUM HYDROXIDE\SODIUM LAURYL SULFATE\SODIUM MAGNESIUM SILICATE\SODIUM MONOFLUOROPHOSPHATE\SORBITOL\WATER [Concomitant]
     Active Substance: CALCIUM GLYCEROPHOSPHATE\POLYETHYLENE GLYCOLS\POWDERED CELLULOSE\SACCHARIN SODIUM DIHYDRATE\SODIUM HYDROXIDE\SODIUM LAURYL SULFATE\SODIUM MAGNESIUM SILICATE\SODIUM MONOFLUOROPHOSPHATE\SORBITOL\WATER
     Indication: CONSTIPATION PROPHYLAXIS
     Route: 065
     Dates: start: 20161104
  26. ZOFRAN [Concomitant]
     Active Substance: ONDANSETRON HYDROCHLORIDE
     Indication: PROPHYLAXIS OF NAUSEA AND VOMITING
     Route: 065
     Dates: start: 20161015
  27. UROMITEXAN 400MG - AMPULLEN [Suspect]
     Active Substance: MESNA
     Route: 065
     Dates: start: 20161216, end: 20161216
  28. VINCRISTINE [Suspect]
     Active Substance: VINCRISTINE
     Indication: B-CELL LYMPHOMA
     Dosage: STARTING DOSE AND ROUTE AS PER PROTOCOL
     Route: 040
     Dates: start: 20161014
  29. ZOLDEM [Concomitant]
     Active Substance: ZOLPIDEM TARTRATE
     Indication: SLEEP DISORDER THERAPY
     Route: 065
     Dates: start: 20161125, end: 20161125
  30. DIBONDRIN [Concomitant]
     Active Substance: DIPHENHYDRAMINE HYDROCHLORIDE
     Indication: CHEMOTHERAPY
     Route: 065
     Dates: start: 20161125, end: 20161125

REACTIONS (1)
  - Pneumonia [Not Recovered/Not Resolved]

NARRATIVE: CASE EVENT DATE: 20161223
